FAERS Safety Report 16467311 (Version 3)
Quarter: 2020Q1

REPORT INFORMATION
  Report Type: Report from Study
  Country: US (occurrence: US)
  Receive Date: 20190624
  Receipt Date: 20200124
  Transmission Date: 20200409
  Serious: Yes (Other)
  Sender: FDA-Public Use
  Company Number: US-ROCHE-2342081

PATIENT
  Sex: Female

DRUGS (2)
  1. ACTEMRA [Suspect]
     Active Substance: TOCILIZUMAB
     Indication: RHEUMATOID ARTHRITIS
     Route: 058
  2. ACTEMRA [Suspect]
     Active Substance: TOCILIZUMAB
     Indication: ARTHRITIS
     Dosage: ONGOING.
     Route: 042

REACTIONS (4)
  - Cataract [Unknown]
  - Cardiac failure [Unknown]
  - Hypoacusis [Unknown]
  - Cardiac failure congestive [Unknown]
